FAERS Safety Report 23822830 (Version 2)
Quarter: 2024Q3

REPORT INFORMATION
  Report Type: Report from Study
  Country: US (occurrence: US)
  Receive Date: 20240506
  Receipt Date: 20240913
  Transmission Date: 20241017
  Serious: Yes (Hospitalization, Other)
  Sender: ABBVIE
  Company Number: US-ABBVIE-5743040

PATIENT
  Age: 84 Year
  Sex: Female

DRUGS (1)
  1. SKYRIZI [Suspect]
     Active Substance: RISANKIZUMAB-RZAA
     Indication: Psoriasis
     Route: 058
     Dates: start: 20221117

REACTIONS (3)
  - Colon cancer [Recovered/Resolved]
  - Coronary arterial stent insertion [Recovered/Resolved]
  - Abdominal abscess [Unknown]

NARRATIVE: CASE EVENT DATE: 20240402
